FAERS Safety Report 16805470 (Version 1)
Quarter: 2019Q4

REPORT INFORMATION
  Report Type: Spontaneous
  Country: US (occurrence: US)
  Receive Date: 20190913
  Receipt Date: 20190913
  Transmission Date: 20200122
  Serious: Yes (Other)
  Sender: FDA-Public Use
  Company Number: None

PATIENT
  Age: 64 Year
  Sex: Male
  Weight: 88.2 kg

DRUGS (3)
  1. ABIRATERONE ACETATE. [Suspect]
     Active Substance: ABIRATERONE ACETATE
     Indication: PROSTATE CANCER
     Dates: start: 20190429
  2. OXYCODONE ER 20MG [Concomitant]
  3. PREDNISONE 5MG [Concomitant]
     Active Substance: PREDNISONE

REACTIONS (2)
  - Swelling [None]
  - Nausea [None]
